FAERS Safety Report 5639155-X (Version None)
Quarter: 2008Q1

REPORT INFORMATION
  Report Type: 
  Country: None (occurrence: None)
  Receive Date: 20080226
  Receipt Date: 20080214
  Transmission Date: 20080703
  Serious: Yes (Hospitalization)
  Sender: FDA-Public Use
  Company Number: US-ELI_LILLY_AND_COMPANY-US200802001078

PATIENT
  Sex: Female

DRUGS (1)
  1. FORTEO [Suspect]
     Indication: OSTEOPOROSIS
     Dosage: UNK, UNKNOWN
     Route: 058
     Dates: start: 20071205

REACTIONS (7)
  - DYSPNOEA [None]
  - EMPHYSEMA [None]
  - FEELING HOT [None]
  - INJECTION SITE BRUISING [None]
  - MALAISE [None]
  - NASAL CONGESTION [None]
  - VIRAL INFECTION [None]
